FAERS Safety Report 24772511 (Version 1)
Quarter: 2024Q4

REPORT INFORMATION
  Report Type: Report from Study
  Country: ZA (occurrence: ZA)
  Receive Date: 20241224
  Receipt Date: 20241224
  Transmission Date: 20250115
  Serious: Yes (Death)
  Sender: ABBVIE
  Company Number: ZA-ABBOTT-2024A-1391062

PATIENT
  Age: 38 Year
  Sex: Male

DRUGS (38)
  1. FENOFIBRATE [Suspect]
     Active Substance: FENOFIBRATE
     Indication: Blood cholesterol
     Dosage: 200 MG TAKE ONE CAPSULE DAILY
     Route: 048
  2. EZETIMIBE [Concomitant]
     Active Substance: EZETIMIBE
     Indication: Hyperlipidaemia
     Dosage: 10 MG TAKE ONE TABLET DAILY
     Route: 048
  3. SACUBITRIL\VALSARTAN [Concomitant]
     Active Substance: SACUBITRIL\VALSARTAN
     Indication: Cardiac failure
     Dosage: 50 MG TAKE ONE TABLET TWICE A DAY
     Route: 048
  4. OTRIVIN PLUS [Concomitant]
     Indication: Hypersensitivity
     Dosage: ONE SPRAY INTO BOTH NOSTRILS THREE TIMESA DAY?OTRIVIN PLUS  METERED-DOSE
     Route: 045
  5. SYSTANE ULTRA [Concomitant]
     Active Substance: POLYETHYLENE GLYCOL 400\PROPYLENE GLYCOL
     Indication: Product used for unknown indication
     Dosage: INSTIL ONE DROP THREE TIMES A DAY IF NECESSARY?SYSTANE ULTRA  MDPF
  6. BISOPROLOL FUMARATE [Concomitant]
     Active Substance: BISOPROLOL FUMARATE
     Indication: Hypertension
     Dosage: 5 MG TAKE ONE TABLET DAILY
     Route: 048
  7. CLOTRIMAZOLE [Concomitant]
     Active Substance: CLOTRIMAZOLE
     Indication: Product used for unknown indication
     Dosage: 1 % INSERT ONE APPLICATORFUL AT NIGHT?CANDASPOR VAG
  8. NEUCON [Concomitant]
     Indication: Attention deficit hyperactivity disorder
     Dosage: 54 MG TAKE ONE TABLET IN THE MORNING
     Route: 048
  9. ACETAMINOPHEN\TRAMADOL HYDROCHLORIDE [Concomitant]
     Active Substance: ACETAMINOPHEN\TRAMADOL HYDROCHLORIDE
     Indication: Pain
     Dosage: TAKE 1-2 TABLETS AT NIGHT WHEN NEEDED FOR PAIN
     Route: 048
  10. CORENZA C [Concomitant]
     Indication: Product used for unknown indication
     Dosage: TAKE ONE DISSOLVED IN WATER THREE TIMES A DAY
     Route: 048
  11. GEN PAYNE [Concomitant]
     Indication: Product used for unknown indication
     Dosage: TAKE 1-2 CAPSULES THREE TIMES A DAY
     Route: 048
  12. FUROSEMIDE [Concomitant]
     Active Substance: FUROSEMIDE
     Indication: Hypertension
     Dosage: 40 MG 1/4 DAILY
     Route: 048
  13. METHYLPHENIDATE HYDROCHLORIDE [Concomitant]
     Active Substance: METHYLPHENIDATE HYDROCHLORIDE
     Indication: Attention deficit hyperactivity disorder
     Dosage: 54 MG TAKE ONE TABLET IN THE MORNING
     Route: 048
  14. FUSIDIC ACID [Concomitant]
     Active Substance: FUSIDIC ACID
     Indication: Product used for unknown indication
     Dosage: 10 MG INSTIL TWO DROPS TWICE A DAY IN BOTH EYES?FUCITHALMIC DPS
     Route: 047
  15. CLOBAZAM [Concomitant]
     Active Substance: CLOBAZAM
     Indication: Anxiety
     Dosage: 10 MG TAKE ONE TABLET ONCE DAILY
     Route: 048
  16. ECOTRIN [Concomitant]
     Active Substance: ASPIRIN
     Indication: Blood disorder prophylaxis
     Dosage: 81 MG TAKE ONE TABLET DAILY
     Route: 048
  17. DAPAGLIFLOZIN [Concomitant]
     Active Substance: DAPAGLIFLOZIN
     Indication: Diabetes mellitus
     Dosage: 10 MG TAKE ONE TABLET IN THE MORNING
     Route: 048
  18. Spiractin [Concomitant]
     Indication: Hypertension
     Dosage: 25 MG TAKE ONE TABLET DAILY
     Route: 048
  19. VOLTAREN [Concomitant]
     Active Substance: DICLOFENAC SODIUM
     Indication: Pain
     Dosage: 75 MG TAKE ONE TABLET TWICE A DAY
     Route: 048
  20. Medazine [Concomitant]
     Indication: Product used for unknown indication
     Dosage: 50 MG TAKE ONE TABLE THREE TIMES A DAY
     Route: 048
  21. ACETAMINOPHEN\CODEINE\IBUPROFEN [Concomitant]
     Active Substance: ACETAMINOPHEN\CODEINE\IBUPROFEN
     Indication: Product used for unknown indication
     Dosage: AS PER PACKAGE INSERT
     Route: 048
  22. ROSUVASTATIN [Concomitant]
     Active Substance: ROSUVASTATIN
     Indication: Blood cholesterol
     Dosage: 20 MG TAKE ONE TABLET DAILY
     Route: 048
  23. ENSURE [Concomitant]
     Active Substance: AMINO ACIDS\DEXTROSE\ELECTROLYTES NOS\SOYBEAN OIL\VITAMINS
     Indication: Product used for unknown indication
     Dosage: VANILLA AS DIRECTED (400G T/F)
     Route: 048
  24. ENSURE [Concomitant]
     Active Substance: AMINO ACIDS\DEXTROSE\ELECTROLYTES NOS\SOYBEAN OIL\VITAMINS
     Indication: Product used for unknown indication
     Dosage: CHOCOLATE AS PER PACKAGE INSERT
     Route: 048
  25. ENSURE [Concomitant]
     Active Substance: AMINO ACIDS\DEXTROSE\ELECTROLYTES NOS\SOYBEAN OIL\VITAMINS
     Indication: Product used for unknown indication
     Dosage: STRAWBERRY AS DIRECTED
     Route: 048
  26. ENSURE [Concomitant]
     Active Substance: AMINO ACIDS\DEXTROSE\ELECTROLYTES NOS\SOYBEAN OIL\VITAMINS
     Indication: Product used for unknown indication
     Dosage: VANILLA AS PER PACKAGE INSERT
     Route: 048
  27. CREON [Suspect]
     Active Substance: PANCRELIPASE AMYLASE\PANCRELIPASE LIPASE\PANCRELIPASE PROTEASE
     Indication: Product used for unknown indication
     Dosage: 300 MG TAKE ONE CAPSULE WITH MEALS IF NECESSARY
     Route: 048
  28. VALPROATE SODIUM [Concomitant]
     Active Substance: VALPROATE SODIUM
     Indication: Depression
     Dosage: 300 MG TAKE ONE TABLET TWICE A DAY
     Route: 048
  29. SULFAMETHOXAZOLE\TRIMETHOPRIM [Concomitant]
     Active Substance: SULFAMETHOXAZOLE\TRIMETHOPRIM
     Indication: Product used for unknown indication
     Dosage: 960 MG TAKE ONE TABLET ON MONDAY,WEDNESDAY AND FRIDAY
     Route: 048
  30. FLUTICASONE FUROATE\VILANTEROL TRIFENATATE [Concomitant]
     Active Substance: FLUTICASONE FUROATE\VILANTEROL TRIFENATATE
     Indication: Asthma
     Dosage: 184/22 MCG TAKE ONE PUFF ONCE DAILY
     Route: 048
  31. QUETIAPINE [Concomitant]
     Active Substance: QUETIAPINE
     Indication: Depression
     Dosage: 25 MG DIRECTIONS TAKE THREETABLETS AT NIGHT
     Route: 048
  32. ASPEN AZITHROMYCIN [Concomitant]
     Indication: Product used for unknown indication
     Dosage: 500 MG TAKE ONE TABLET ON MONDAY, WEDNESDAY AND FRIDAY
     Route: 048
  33. FLUTICASONE PROPIONATE\SALMETEROL XINAFOATE [Concomitant]
     Active Substance: FLUTICASONE PROPIONATE\SALMETEROL XINAFOATE
     Indication: Asthma
     Dosage: 25/125 MCG TAKE TWO PUFFS TWICE A DAY (RINSE MOUTH AFTER USE
     Route: 048
  34. CELLCEPT [Concomitant]
     Active Substance: MYCOPHENOLATE MOFETIL
     Indication: Product used for unknown indication
     Dosage: 500 MG TAKE TWO TABLETS TWICE A DAY
     Route: 048
  35. CYCLOSPORINE [Concomitant]
     Active Substance: CYCLOSPORINE
     Indication: Organ transplant
     Dosage: 25 MG TAKE TWO CAPSULES TWICE A DAY
     Route: 048
  36. CERTICAN [Concomitant]
     Active Substance: EVEROLIMUS
     Indication: Organ transplant
     Dosage: 0.75 MG TAKE ONE TABLET TWICE A DAY
     Route: 048
  37. CERTICAN [Concomitant]
     Active Substance: EVEROLIMUS
     Indication: Organ transplant
     Dosage: 0.25 MG TAKE TWO TABLETS TWICE A DAY
     Route: 048
  38. PREDNISONE [Concomitant]
     Active Substance: PREDNISONE
     Indication: Product used for unknown indication
     Dosage: 5 MG TAKE ONE AND A HALF TABLET ONCE DAILY AFTER A MEAL
     Route: 048

REACTIONS (2)
  - Cerebral haemorrhage [Fatal]
  - Cardiac disorder [Unknown]
